FAERS Safety Report 17828633 (Version 1)
Quarter: 2020Q2

REPORT INFORMATION
  Report Type: Spontaneous
  Country: GB (occurrence: GB)
  Receive Date: 20200527
  Receipt Date: 20200527
  Transmission Date: 20200714
  Serious: Yes (Hospitalization, Other)
  Sender: FDA-Public Use
  Company Number: GB-MYLANLABS-2020M1051336

PATIENT
  Sex: Male

DRUGS (1)
  1. PREGABALIN MYLAN 100 MG HARD CAPSULES [Suspect]
     Active Substance: PREGABALIN
     Indication: FIBROMYALGIA
     Dosage: 100 MILLIGRAM
     Dates: start: 2004

REACTIONS (4)
  - Pneumonia [Unknown]
  - Neoplasm malignant [Unknown]
  - Sepsis [Unknown]
  - Mobility decreased [Unknown]
